FAERS Safety Report 11814142 (Version 1)
Quarter: 2015Q4

REPORT INFORMATION
  Report Type: Spontaneous
  Country: US (occurrence: None)
  Receive Date: 20151208
  Receipt Date: 20151208
  Transmission Date: 20160305
  Serious: No
  Sender: FDA-Public Use
  Company Number: None

PATIENT
  Age: 27 Year
  Sex: Female

DRUGS (1)
  1. MAKENA [Suspect]
     Active Substance: HYDROXYPROGESTERONE CAPROATE
     Indication: PREMATURE LABOUR
     Route: 030
     Dates: start: 201508, end: 20151207

REACTIONS (6)
  - Insomnia [None]
  - Dyspnoea [None]
  - Injection site reaction [None]
  - Erythema [None]
  - Feeling hot [None]
  - Pruritus [None]

NARRATIVE: CASE EVENT DATE: 201511
